FAERS Safety Report 18273429 (Version 1)
Quarter: 2020Q3

REPORT INFORMATION
  Report Type: Spontaneous
  Country: US (occurrence: US)
  Receive Date: 20200916
  Receipt Date: 20200916
  Transmission Date: 20201103
  Serious: Yes (Life-Threatening)
  Sender: FDA-Public Use
  Company Number: None

PATIENT
  Age: 72 Year
  Sex: Male
  Weight: 70 kg

DRUGS (14)
  1. ATORVASTATIN 80 MG PO QPM [Concomitant]
     Dates: start: 20200911
  2. AZITHROMYCIN 500 MG IV/PO DAILY [Concomitant]
     Dates: start: 20200911, end: 20200915
  3. REMDESIVIR FOR INJECTION 100 MG/20 ML [Suspect]
     Active Substance: REMDESIVIR
     Indication: COVID-19
     Route: 042
     Dates: start: 20200912, end: 20200916
  4. CEFTRIAXONE 1 G IV Q24H [Concomitant]
     Dates: start: 20200912
  5. ENOXAPARIN 70 MG SC Q12H [Concomitant]
     Dates: start: 20200912
  6. ERGOCALCIFEROL 50,000 UNIT Q7D [Concomitant]
     Dates: start: 20200911
  7. GUAIFENESIN 10 ML PO Q6H PRN [Concomitant]
     Dates: start: 20200915
  8. LATANOPROST 0.005% OPTH 1 DROP OU QHS [Concomitant]
     Dates: start: 20200913
  9. ZINC SULFATE 220 MG PO Q24H [Concomitant]
     Dates: start: 20200911
  10. ONDANSETRON 4 MG IV Q6H PRN [Concomitant]
     Dates: start: 20200911
  11. DEXAMETHASONE 6 MG IV Q24H [Concomitant]
     Dates: start: 20200911
  12. ACETAMINOPHEN 650 MG PO PRN [Concomitant]
     Dates: start: 20200913
  13. FAMOTIDINE 20 MG IV/PO BID [Concomitant]
     Dates: start: 20200912
  14. IPRATROPIUM/ALBUTEROL NEBULIZER 3 ML QID PRN [Concomitant]
     Dates: start: 20200911

REACTIONS (4)
  - Bradycardia [None]
  - Liver function test increased [None]
  - Hypoxia [None]
  - Sinus arrest [None]

NARRATIVE: CASE EVENT DATE: 20200915
